FAERS Safety Report 17527039 (Version 1)
Quarter: 2020Q1

REPORT INFORMATION
  Report Type: Spontaneous
  Country: CA (occurrence: CA)
  Receive Date: 20200311
  Receipt Date: 20200311
  Transmission Date: 20200409
  Serious: Yes (Hospitalization)
  Sender: FDA-Public Use
  Company Number: CA-ICU MEDICAL, INC.-ICU2020CA00007

PATIENT

DRUGS (4)
  1. 0.9% SODIUM CHLORIDE INJECTION USP (500 ML) [Suspect]
     Active Substance: SODIUM CHLORIDE
     Indication: HYPOMAGNESAEMIA
     Dosage: 500 MILLIGRAM, QD
     Route: 042
  2. SODIUM PHOSPHATE [Suspect]
     Active Substance: SODIUM PHOSPHATE
     Indication: HYPOMAGNESAEMIA
  3. MAGNESIUM SULFATE. [Suspect]
     Active Substance: MAGNESIUM SULFATE
     Indication: HYPOMAGNESAEMIA
     Dosage: 2000 MILLIGRAM, QD
     Route: 042
  4. SODIUM PHOSPHATE [Suspect]
     Active Substance: SODIUM PHOSPHATE
     Indication: HYPONATRAEMIA
     Dosage: 15.0 MILLIMOLE, QD
     Route: 042

REACTIONS (2)
  - Palpitations [Unknown]
  - Dyspnoea [Unknown]
